FAERS Safety Report 7526802-0 (Version None)
Quarter: 2011Q2

REPORT INFORMATION
  Report Type: 
  Country: None (occurrence: None)
  Receive Date: 20110606
  Receipt Date: 20110531
  Transmission Date: 20111010
  Serious: Yes (Death, Life-Threatening, Hospitalization)
  Sender: FDA-Public Use
  Company Number: DE-BRACCO-000156

PATIENT
  Age: 64 Year
  Sex: Female

DRUGS (2)
  1. BARIUM SULFATE [Suspect]
     Indication: DIAGNOSTIC PROCEDURE
     Route: 048
  2. BARIUM SULFATE [Suspect]
     Indication: GASTRIC NEOPLASM
     Route: 048

REACTIONS (3)
  - ASPIRATION [None]
  - PNEUMONIA ASPIRATION [None]
  - ACUTE RESPIRATORY DISTRESS SYNDROME [None]
